FAERS Safety Report 7599417-6 (Version None)
Quarter: 2011Q3

REPORT INFORMATION
  Report Type: 
  Country: None (occurrence: None)
  Receive Date: 20110711
  Receipt Date: 20090213
  Transmission Date: 20111222
  Serious: Yes (Death, Hospitalization, Other)
  Sender: FDA-Public Use
  Company Number: US-BAYER-200912792NA

PATIENT
  Age: 80 Year
  Sex: Male
  Weight: 79.365 kg

DRUGS (31)
  1. AMIODARONE HCL [Concomitant]
     Dosage: UNK
     Route: 042
  2. MIDAZOLAM HCL [Concomitant]
     Dosage: UNK
     Route: 042
     Dates: start: 20011023, end: 20011023
  3. VANCOMYCIN [Concomitant]
     Dosage: 1000 MG, UNK
     Route: 042
     Dates: start: 20011023, end: 20011023
  4. FRESH FROZEN PLASMA [Concomitant]
     Dosage: 1 U, UNK
     Route: 042
     Dates: start: 20011023
  5. ALDACTAZIDE [Concomitant]
     Dosage: 25MG/25MG
  6. LASIX [Concomitant]
     Dosage: 400 MG, UNK
     Route: 042
  7. LASIX [Concomitant]
     Dosage: 100 MG, UNK
     Route: 042
     Dates: start: 20011020
  8. LASIX [Concomitant]
     Dosage: UNK
     Dates: start: 20011024
  9. RED BLOOD CELLS [Concomitant]
     Dosage: 3 U, UNK
     Route: 042
     Dates: start: 20011023
  10. PLATELETS [Concomitant]
     Dosage: 2 U, UNK
     Route: 042
     Dates: start: 20011023
  11. MINIPRESS [Concomitant]
     Dosage: 1 MG, UNK
     Route: 048
  12. PRIMACOR [Concomitant]
     Dosage: UNK
     Route: 042
     Dates: start: 20011023, end: 20011023
  13. KETAMINE HCL [Concomitant]
     Dosage: UNK
     Route: 042
     Dates: start: 20011023, end: 20011023
  14. HEPARIN [Concomitant]
     Dosage: 26000 U, UNK
     Route: 042
     Dates: start: 20011023, end: 20011023
  15. CONTRAST MEDIA [Concomitant]
     Indication: CATHETERISATION CARDIAC
     Dosage: UNK
     Dates: start: 20011021
  16. ADALAT CC [Concomitant]
     Dosage: 60 MG, UNK
     Route: 048
  17. VERCURONIUM/PANCURONIUM [Concomitant]
     Dosage: UNK
     Route: 042
     Dates: start: 20011023, end: 20011023
  18. PROCAINAMIDE [Concomitant]
     Dosage: UNK
     Route: 042
     Dates: start: 20011023, end: 20011023
  19. HEPARIN [Concomitant]
     Dosage: UNK
     Route: 042
     Dates: start: 20011023, end: 20011023
  20. PROTAMINE SULFATE [Concomitant]
     Dosage: UNK
     Route: 042
     Dates: start: 20011023, end: 20011023
  21. LOVENOX [Concomitant]
     Dosage: 80 MG, UNK
     Route: 058
     Dates: start: 20011020
  22. PROSCAR [Concomitant]
     Dosage: 5 MG, UNK
     Route: 048
  23. TRASYLOL [Suspect]
     Indication: CORONARY ARTERY BYPASS
     Dosage: 2000000 KIU, UNK
     Route: 042
     Dates: start: 20011023, end: 20011023
  24. DOBUTAMINE HCL [Concomitant]
     Dosage: UNK
     Route: 042
     Dates: start: 20011023, end: 20011023
  25. CEFUROXIME [Concomitant]
     Dosage: UNK
     Route: 042
     Dates: start: 20011023, end: 20011023
  26. DOPAMINE HCL [Concomitant]
     Route: 042
  27. NOREPINEPHRINE BITARTRATE [Concomitant]
     Dosage: UNK
     Route: 042
     Dates: start: 20011023, end: 20011023
  28. HEPARIN [Concomitant]
     Dosage: 8000 U, UNK
     Route: 042
     Dates: start: 20011023, end: 20011023
  29. OXYGEN [Concomitant]
  30. AVALIDE [Concomitant]
     Dosage: 150MG/12.5MG
     Route: 048
  31. SUFENTA PRESERVATIVE FREE [Concomitant]
     Dosage: UNK
     Route: 042
     Dates: start: 20011023, end: 20011023

REACTIONS (6)
  - RENAL FAILURE ACUTE [None]
  - RENAL FAILURE [None]
  - INJURY [None]
  - PAIN [None]
  - UNEVALUABLE EVENT [None]
  - MULTI-ORGAN FAILURE [None]
